FAERS Safety Report 5362970-7 (Version None)
Quarter: 2007Q2

REPORT INFORMATION
  Report Type: 
  Country: None (occurrence: None)
  Receive Date: 20070615
  Receipt Date: 20070608
  Transmission Date: 20071010
  Serious: Yes (Life-Threatening)
  Sender: FDA-Public Use
  Company Number: 43000E4E07ITA

PATIENT
  Age: 65 Year
  Sex: Male

DRUGS (3)
  1. NOVANTRONE [Suspect]
     Indication: ACUTE MYELOID LEUKAEMIA
     Dosage: 39 MG
     Dates: start: 20061229, end: 20070102
  2. CYTARABINE [Suspect]
     Indication: ACUTE MYELOID LEUKAEMIA
     Dosage: 1260 MG
     Dates: start: 20061229, end: 20070104
  3. ETOPOSIDE [Suspect]
     Indication: ACUTE MYELOID LEUKAEMIA
     Dosage: 180 MG
     Dates: start: 20061229, end: 20061231

REACTIONS (1)
  - PULMONARY ALVEOLAR HAEMORRHAGE [None]
